FAERS Safety Report 25675352 (Version 1)
Quarter: 2025Q3

REPORT INFORMATION
  Report Type: Spontaneous
  Country: US (occurrence: None)
  Receive Date: 20250812
  Receipt Date: 20250812
  Transmission Date: 20251020
  Serious: No
  Sender: FDA-CTU
  Company Number: None

PATIENT
  Age: 75 Year
  Sex: Female

DRUGS (1)
  1. TYENNE [Suspect]
     Active Substance: TOCILIZUMAB-AAZG
     Indication: Polymyalgia rheumatica
     Dosage: FREQUENCY : WEEKLY;?
     Route: 058
     Dates: start: 202505

REACTIONS (2)
  - Hip fracture [None]
  - Infection [None]
